FAERS Safety Report 5638748-3 (Version None)
Quarter: 2008Q1

REPORT INFORMATION
  Report Type: 
  Country: None (occurrence: None)
  Receive Date: 20080226
  Receipt Date: 20080215
  Transmission Date: 20080703
  Serious: Yes (Other)
  Sender: FDA-Public Use
  Company Number: US-JNJFOC-20080204039

PATIENT
  Sex: Male
  Weight: 156.49 kg

DRUGS (22)
  1. FENTANYL TRANSDERMAL SYSTEM [Suspect]
     Indication: BACK PAIN
     Route: 062
  2. DIGITEK [Concomitant]
     Indication: CARDIAC DISORDER
     Route: 048
  3. SOTALOL [Concomitant]
     Indication: CARDIAC DISORDER
     Route: 048
  4. LISINOPRIL [Concomitant]
     Indication: BLOOD PRESSURE
     Route: 048
  5. COUMADIN [Concomitant]
     Route: 048
  6. LASIX [Concomitant]
     Indication: OEDEMA PERIPHERAL
     Route: 048
  7. POTASSIUM CHLORIDE [Concomitant]
     Route: 048
  8. MULTI-VITAMIN [Concomitant]
     Indication: MEDICAL DIET
     Route: 048
  9. ASCORBIC ACID [Concomitant]
     Indication: ANTIVIRAL PROPHYLAXIS
     Route: 048
  10. TRICOR [Concomitant]
     Indication: BLOOD CHOLESTEROL
     Route: 048
  11. LIPITOR [Concomitant]
     Indication: BLOOD CHOLESTEROL
     Route: 048
  12. GLIPIZIDE [Concomitant]
     Indication: DIABETES MELLITUS
     Route: 048
  13. EFFEXOR XR [Concomitant]
     Indication: DEPRESSION
     Route: 048
  14. LANTUS [Concomitant]
     Indication: DIABETES MELLITUS
     Route: 050
  15. HUMULIN 70/30 [Concomitant]
     Dosage: AS NEEDED
     Route: 050
  16. XANAX [Concomitant]
     Indication: PANIC ATTACK
     Route: 048
  17. LOVANZA [Concomitant]
     Indication: BLOOD CHOLESTEROL
     Dosage: 4 CAPSULES
     Route: 048
  18. VITAMIN B6 [Concomitant]
     Indication: DIABETIC NEUROPATHY
     Route: 048
  19. GABAPENTIN [Concomitant]
     Indication: DIABETIC NEUROPATHY
     Route: 048
  20. CIALIS [Concomitant]
     Indication: ERECTILE DYSFUNCTION
     Dosage: EVERY 72 HOURS AS NEEDED
     Route: 048
  21. ALBUTEROL [Concomitant]
     Indication: BRONCHITIS CHRONIC
     Route: 055
  22. ALBUTEROL [Concomitant]
     Indication: EMPHYSEMA
     Dosage: 2 PUFFS EVERY 4 HOURS
     Route: 055

REACTIONS (5)
  - CONFUSIONAL STATE [None]
  - DIPLOPIA [None]
  - HEADACHE [None]
  - RESPIRATORY DISORDER [None]
  - WRONG TECHNIQUE IN DRUG USAGE PROCESS [None]
